FAERS Safety Report 20723018 (Version 1)
Quarter: 2022Q2

REPORT INFORMATION
  Report Type: Report from Study
  Country: CA (occurrence: CA)
  Receive Date: 20220419
  Receipt Date: 20220419
  Transmission Date: 20220721
  Serious: Yes (Other)
  Sender: FDA-Public Use
  Company Number: CA-NOVOPROD-893368

PATIENT
  Age: 62 Year
  Sex: Male
  Weight: 92 kg

DRUGS (1)
  1. SEMAGLUTIDE [Suspect]
     Active Substance: SEMAGLUTIDE
     Indication: Obesity
     Dosage: 2.4 MG, QW
     Route: 058
     Dates: start: 20190407

REACTIONS (1)
  - Bile duct stone [Recovered/Resolved]

NARRATIVE: CASE EVENT DATE: 20220207
